FAERS Safety Report 5021422-4 (Version None)
Quarter: 2006Q2

REPORT INFORMATION
  Report Type: 
  Country: None (occurrence: None)
  Receive Date: 20060608
  Receipt Date: 19980511
  Transmission Date: 20061013
  Serious: Yes (Death, Life-Threatening, Hospitalization)
  Sender: FDA-Public Use
  Company Number: B038625

PATIENT
  Age: 55 Year
  Sex: Female
  Weight: 78 kg

DRUGS (1)
  1. TAXOL [Suspect]
     Indication: BREAST CANCER
     Route: 042
     Dates: start: 19980211, end: 19980429

REACTIONS (1)
  - PULMONARY EMBOLISM [None]
